FAERS Safety Report 13195341 (Version 4)
Quarter: 2017Q2

REPORT INFORMATION
  Report Type: Report from Study
  Country: DE (occurrence: DE)
  Receive Date: 20170208
  Receipt Date: 20170519
  Transmission Date: 20170830
  Serious: Yes (Hospitalization)
  Sender: FDA-Public Use
  Company Number: DE-ROCHE-1887429

PATIENT
  Sex: Male

DRUGS (15)
  1. HYDROCHLOROTHIAZID [Concomitant]
     Active Substance: HYDROCHLOROTHIAZIDE
     Indication: HYPERTENSION
     Route: 048
  2. ACICLOVIR [Concomitant]
     Active Substance: ACYCLOVIR
     Indication: PROPHYLAXIS
     Route: 048
     Dates: start: 20161230
  3. SULFAMETHOXAZOLE/TRIMETHOPRIM [Concomitant]
     Active Substance: SULFAMETHOXAZOLE\TRIMETHOPRIM
     Indication: PROPHYLAXIS
     Dosage: ON 2 DAYS
     Route: 048
     Dates: start: 20161231
  4. PANTOPRAZOL NATRIUM [Concomitant]
     Active Substance: PANTOPRAZOLE SODIUM
     Indication: PROPHYLAXIS
     Route: 048
  5. PRAVASTATIN NATRIUM [Concomitant]
     Indication: HYPERCHOLESTEROLAEMIA
     Route: 048
  6. CYCLOPHOSPHAMIDE. [Suspect]
     Active Substance: CYCLOPHOSPHAMIDE
     Indication: B-CELL LYMPHOMA
     Dosage: DATE LAST RITUXIMAB GIVEN PRIOR TO SAE: 17/JAN/2017
     Route: 042
     Dates: start: 20161230
  7. DOXORUBICIN [Suspect]
     Active Substance: DOXORUBICIN
     Indication: B-CELL LYMPHOMA
     Dosage: DATE LAST RITUXIMAB GIVEN PRIOR TO SAE: 17/JAN/2017
     Route: 042
     Dates: start: 20161230
  8. CIPROFLOXACIN. [Concomitant]
     Active Substance: CIPROFLOXACIN
     Indication: PROPHYLAXIS
     Route: 048
     Dates: start: 20160104
  9. PREDNISOLONE. [Suspect]
     Active Substance: PREDNISOLONE
     Indication: B-CELL LYMPHOMA
     Dosage: FOR 5 DAYS. DATE LAST RITUXIMAB GIVEN PRIOR TO SAE: 17/JAN/2017
     Route: 048
     Dates: start: 20161230
  10. ACETYLSALICYLIC ACID [Concomitant]
     Active Substance: ASPIRIN
     Route: 048
  11. RAMIPRIL. [Concomitant]
     Active Substance: RAMIPRIL
     Indication: HYPERTENSION
     Route: 048
  12. AMPHOTERICIN B. [Concomitant]
     Active Substance: AMPHOTERICIN B
     Indication: PROPHYLAXIS
     Dosage: 3/D
     Route: 048
     Dates: start: 20170105
  13. LIPEGFILGRASTIM [Suspect]
     Active Substance: LIPEGFILGRASTIM
     Indication: B-CELL LYMPHOMA
     Dosage: DAY 4 AFTER CHEMO.
     Route: 058
     Dates: start: 20170102, end: 20170120
  14. RITUXIMAB [Suspect]
     Active Substance: RITUXIMAB
     Indication: B-CELL LYMPHOMA
     Dosage: DATE LAST RITUXIMAB GIVEN PRIOR TO SAE: 16/JAN/2017
     Route: 042
     Dates: start: 20161229
  15. LIPOSOMAL VINCRISTINE [Suspect]
     Active Substance: VINCRISTINE
     Indication: B-CELL LYMPHOMA
     Dosage: DATE LAST RITUXIMAB GIVEN PRIOR TO SAE: 17/JAN/2017
     Route: 042
     Dates: start: 20161230

REACTIONS (1)
  - Jejunal stenosis [Recovered/Resolved]

NARRATIVE: CASE EVENT DATE: 20170128
